FAERS Safety Report 20503609 (Version 1)
Quarter: 2022Q1

REPORT INFORMATION
  Report Type: Spontaneous
  Country: IT (occurrence: IT)
  Receive Date: 20220222
  Receipt Date: 20220222
  Transmission Date: 20220423
  Serious: Yes (Death, Hospitalization)
  Sender: FDA-Public Use
  Company Number: IT-002147023-NVSC2022IT034042

PATIENT

DRUGS (1)
  1. RUXOLITINIB [Suspect]
     Active Substance: RUXOLITINIB
     Indication: Myelofibrosis
     Dosage: UNK
     Route: 065

REACTIONS (4)
  - Blast cell proliferation [Unknown]
  - Hepatic infiltration eosinophilic [Unknown]
  - Splenomegaly [Unknown]
  - Hepatic failure [Fatal]
